FAERS Safety Report 12330482 (Version 1)
Quarter: 2016Q2

REPORT INFORMATION
  Report Type: Spontaneous
  Country: ES (occurrence: ES)
  Receive Date: 20160504
  Receipt Date: 20160504
  Transmission Date: 20160815
  Serious: Yes (Other)
  Sender: FDA-Public Use
  Company Number: ES-009507513-1604ESP018037

PATIENT
  Age: 57 Year
  Sex: Male
  Weight: 81 kg

DRUGS (1)
  1. EZETROL 10 MG COMPRIMIDOS [Suspect]
     Active Substance: EZETIMIBE
     Indication: HYPERCHOLESTEROLAEMIA
     Route: 048
     Dates: start: 20160303, end: 20160403

REACTIONS (3)
  - Palpitations [Unknown]
  - Myalgia [Unknown]
  - Paraesthesia [Unknown]

NARRATIVE: CASE EVENT DATE: 20160303
